FAERS Safety Report 20604799 (Version 1)
Quarter: 2022Q1

REPORT INFORMATION
  Report Type: Spontaneous
  Country: US (occurrence: US)
  Receive Date: 20220317
  Receipt Date: 20220317
  Transmission Date: 20220423
  Serious: Yes (Death, Other)
  Sender: FDA-Public Use
  Company Number: US-ALVOGEN-2022-ALVOGEN-118859

PATIENT
  Age: 41 Year
  Sex: Male

DRUGS (8)
  1. GABAPENTIN [Suspect]
     Active Substance: GABAPENTIN
     Indication: Drug abuse
  2. THEOPHYLLINE [Suspect]
     Active Substance: THEOPHYLLINE
     Indication: Drug abuse
  3. INDOMETHACIN [Suspect]
     Active Substance: INDOMETHACIN
     Indication: Drug abuse
  4. ROFLUMILAST [Suspect]
     Active Substance: ROFLUMILAST
     Indication: Drug abuse
  5. ROPINIROLE [Suspect]
     Active Substance: ROPINIROLE
     Indication: Drug abuse
  6. MELOXICAM [Suspect]
     Active Substance: MELOXICAM
     Indication: Drug abuse
  7. BENZONATATE [Suspect]
     Active Substance: BENZONATATE
     Indication: Drug abuse
  8. RANOLAZINE [Suspect]
     Active Substance: RANOLAZINE
     Indication: Drug abuse

REACTIONS (1)
  - Drug abuse [Fatal]
